FAERS Safety Report 13162479 (Version 2)
Quarter: 2017Q3

REPORT INFORMATION
  Report Type: Spontaneous
  Country: GB (occurrence: GB)
  Receive Date: 20170130
  Receipt Date: 20170914
  Transmission Date: 20171127
  Serious: Yes (Hospitalization, Other)
  Sender: FDA-Public Use
  Company Number: GB-ORION CORPORATION ORION PHARMA-TREX2017-0296

PATIENT
  Sex: Female

DRUGS (4)
  1. METHOTREXATE (TRADE NAME UNKNOWN) [Suspect]
     Active Substance: METHOTREXATE
     Indication: PSORIATIC ARTHROPATHY
     Route: 065
  2. HUMIRA [Suspect]
     Active Substance: ADALIMUMAB
     Indication: SPONDYLITIS
  3. HUMIRA [Suspect]
     Active Substance: ADALIMUMAB
     Indication: PSORIATIC ARTHROPATHY
     Route: 058
     Dates: start: 2015, end: 201612
  4. METHOTREXATE (TRADE NAME UNKNOWN) [Suspect]
     Active Substance: METHOTREXATE
     Indication: SPONDYLITIS

REACTIONS (9)
  - Atrial flutter [Recovered/Resolved]
  - Pneumonia [Unknown]
  - Spinal pain [Unknown]
  - Lower respiratory tract infection [Unknown]
  - Pulmonary oedema [Recovered/Resolved]
  - Cardiac failure [Recovered/Resolved]
  - Atrial fibrillation [Recovered/Resolved]
  - Chronic obstructive pulmonary disease [Unknown]
  - Arthralgia [Unknown]
